FAERS Safety Report 13463638 (Version 2)
Quarter: 2017Q2

REPORT INFORMATION
  Report Type: Spontaneous
  Country: RO (occurrence: RO)
  Receive Date: 20170420
  Receipt Date: 20170615
  Transmission Date: 20170830
  Serious: Yes (Hospitalization, Other)
  Sender: FDA-Public Use
  Company Number: RO-IMPAX LABORATORIES, INC-2017-IPXL-01004

PATIENT
  Age: 65 Year
  Sex: Female

DRUGS (1)
  1. METFORMIN HYDROCHLORIDE ER [Suspect]
     Active Substance: METFORMIN HYDROCHLORIDE
     Indication: TYPE 2 DIABETES MELLITUS
     Dosage: 850 MG 1 TABLET THRICE A DAY
     Route: 065

REACTIONS (6)
  - Coma [Recovered/Resolved]
  - Acute kidney injury [Not Recovered/Not Resolved]
  - Lactic acidosis [Recovered/Resolved]
  - Ventricular tachycardia [Recovered/Resolved]
  - Cardiac arrest [Recovered/Resolved]
  - Toxicity to various agents [Unknown]
